FAERS Safety Report 11311692 (Version 1)
Quarter: 2015Q3

REPORT INFORMATION
  Report Type: Spontaneous
  Country: US (occurrence: None)
  Receive Date: 20150724
  Receipt Date: 20150724
  Transmission Date: 20151125
  Serious: No
  Sender: FDA-Public Use
  Company Number: None

PATIENT
  Age: 69 Year
  Sex: Male

DRUGS (15)
  1. EPINEPHRINE. [Concomitant]
     Active Substance: EPINEPHRINE
  2. SODIUM BICARBONATE. [Concomitant]
     Active Substance: SODIUM BICARBONATE
  3. AMINOCAPROIC ACID. [Concomitant]
     Active Substance: AMINOCAPROIC ACID
  4. CALCIUM CHLORIDE. [Concomitant]
     Active Substance: CALCIUM CHLORIDE
  5. CISATRACURIUM. [Concomitant]
     Active Substance: CISATRACURIUM
  6. NICARDIPINE [Concomitant]
     Active Substance: NICARDIPINE
  7. PROPOFOL. [Concomitant]
     Active Substance: PROPOFOL
  8. VANCOMYCIN [Concomitant]
     Active Substance: VANCOMYCIN
  9. INSULIN REGULAR [Concomitant]
     Active Substance: INSULIN NOS
  10. METHYLPREDNISOLONE. [Concomitant]
     Active Substance: METHYLPREDNISOLONE
  11. MIDAZOLAM [Concomitant]
     Active Substance: MIDAZOLAM\MIDAZOLAM HYDROCHLORIDE
  12. HEPARIN [Suspect]
     Active Substance: HEPARIN SODIUM
     Indication: SURGERY
     Dosage: 18,000 + 5000 + 3,000 UNITS CONTINUOUS IV
     Route: 042
     Dates: start: 20150401, end: 20150401
  13. VECURIONIUM [Concomitant]
  14. CEFAZOLIN [Concomitant]
     Active Substance: CEFAZOLIN
  15. PHENYLEPHRINE [Concomitant]
     Active Substance: PHENYLEPHRINE\PHENYLEPHRINE HYDROCHLORIDE

REACTIONS (1)
  - Activated partial thromboplastin time prolonged [None]

NARRATIVE: CASE EVENT DATE: 20150401
